FAERS Safety Report 10195488 (Version 1)
Quarter: 2014Q2

REPORT INFORMATION
  Report Type: Report from Study
  Country: FR (occurrence: FR)
  Receive Date: 20140526
  Receipt Date: 20140526
  Transmission Date: 20141212
  Serious: No
  Sender: FDA-Public Use
  Company Number: PHHY2014FR063779

PATIENT
  Age: 73 Year
  Sex: Female

DRUGS (10)
  1. TASIGNA [Suspect]
     Dosage: 400 MG, PER DAY
     Dates: start: 20120114
  2. TASIGNA [Suspect]
     Dosage: 400 MG, PER DAY
     Dates: start: 20120221
  3. TASIGNA [Suspect]
     Dosage: 200 MG, PER DAY
     Dates: start: 20120823, end: 20121007
  4. TASIGNA [Suspect]
     Dosage: 400 MG, PER DAY
     Dates: start: 20121008, end: 20121113
  5. TASIGNA [Suspect]
     Dosage: 400 MG, PER DAY
     Dates: start: 20121118, end: 20121122
  6. TASIGNA [Suspect]
     Dosage: 400 MG,PER DAY
     Dates: start: 20121127, end: 20121128
  7. TASIGNA [Suspect]
     Dosage: 200 MG, PER DAY
     Dates: start: 20130103, end: 20130121
  8. TASIGNA [Suspect]
     Dosage: 400 MG, PER DAY
     Dates: start: 20130122
  9. DEXARIL [Concomitant]
     Indication: DRY SKIN
     Dates: start: 20120112
  10. MACROGOL [Concomitant]
     Indication: CONSTIPATION
     Dates: start: 201311

REACTIONS (1)
  - Hypercholesterolaemia [Recovered/Resolved]
